FAERS Safety Report 13766813 (Version 1)
Quarter: 2017Q3

REPORT INFORMATION
  Report Type: Spontaneous
  Country: ZA (occurrence: ZA)
  Receive Date: 20170719
  Receipt Date: 20170719
  Transmission Date: 20171127
  Serious: Yes (Other)
  Sender: FDA-Public Use
  Company Number: ZA-009507513-1707ZAF005981

PATIENT

DRUGS (1)
  1. MONTE-AIR [Suspect]
     Active Substance: MONTELUKAST SODIUM

REACTIONS (1)
  - Growth retardation [Unknown]
